APPROVED DRUG PRODUCT: CEPHALEXIN
Active Ingredient: CEPHALEXIN
Strength: EQ 250MG BASE
Dosage Form/Route: CAPSULE;ORAL
Application: A062773 | Product #001
Applicant: BARR LABORATORIES INC
Approved: Jun 26, 1987 | RLD: No | RS: No | Type: DISCN